FAERS Safety Report 8792628 (Version 1)
Quarter: 2012Q4

REPORT INFORMATION
  Report Type: 
  Country: US (occurrence: US)
  Receive Date: 20120918
  Receipt Date: 20120918
  Transmission Date: 20130627
  Serious: Yes (Other)
  Sender: FDA-Public Use
  Company Number: US-BAYER-2012-096111

PATIENT
  Sex: Female

DRUGS (7)
  1. CLIMARA [Suspect]
     Indication: HORMONE THERAPY
  2. PREMPRO [Suspect]
     Indication: HORMONE THERAPY
  3. PREMARIN [Suspect]
     Indication: HORMONE THERAPY
  4. ESTRACE [Suspect]
     Indication: HORMONE THERAPY
  5. PROVERA [Suspect]
     Indication: HORMONE THERAPY
  6. ESTROGEN [Suspect]
     Indication: HORMONE THERAPY
  7. MEDROXYPROGESTERONE ACETATE [Suspect]
     Indication: HORMONE THERAPY

REACTIONS (1)
  - Breast cancer female [None]
